FAERS Safety Report 25842281 (Version 1)
Quarter: 2025Q3

REPORT INFORMATION
  Report Type: Spontaneous
  Country: US (occurrence: None)
  Receive Date: 20250924
  Receipt Date: 20250924
  Transmission Date: 20251020
  Serious: Yes (Other)
  Sender: FDA-CTU
  Company Number: None

PATIENT
  Age: 55 Year
  Sex: Female
  Weight: 48.6 kg

DRUGS (8)
  1. VARITHENA [Suspect]
     Active Substance: POLIDOCANOL
  2. eSTRADIOL .075 PATCH [Concomitant]
  3. pROGESTIN ORAL [Concomitant]
  4. c [Concomitant]
  5. BORON [Concomitant]
     Active Substance: BORON
  6. MAGNESIUM [Concomitant]
     Active Substance: MAGNESIUM
  7. NAC [Concomitant]
  8. GLUTATHIONE [Concomitant]
     Active Substance: GLUTATHIONE

REACTIONS (8)
  - Photopsia [None]
  - Visual impairment [None]
  - Hypoaesthesia [None]
  - Hypoaesthesia [None]
  - Feeling abnormal [None]
  - Blood pressure abnormal [None]
  - Migraine [None]
  - Cerebral gas embolism [None]

NARRATIVE: CASE EVENT DATE: 20250922
